FAERS Safety Report 20611173 (Version 1)
Quarter: 2022Q1

REPORT INFORMATION
  Report Type: Spontaneous
  Country: CN (occurrence: CN)
  Receive Date: 20220318
  Receipt Date: 20220318
  Transmission Date: 20220423
  Serious: Yes (Hospitalization)
  Sender: FDA-Public Use
  Company Number: CN-PFIZER INC-202200364905

PATIENT
  Age: 48 Year
  Sex: Male
  Weight: 61 kg

DRUGS (1)
  1. LIPITOR [Suspect]
     Active Substance: ATORVASTATIN CALCIUM
     Indication: Lipids decreased
     Dosage: 20 MG, 1X/DAY
     Route: 048
     Dates: start: 20201225, end: 20220228

REACTIONS (4)
  - Chest discomfort [Unknown]
  - Palpitations [Unknown]
  - Tachypnoea [Unknown]
  - Musculoskeletal pain [Recovering/Resolving]

NARRATIVE: CASE EVENT DATE: 20210605
